FAERS Safety Report 19941039 (Version 1)
Quarter: 2021Q4

REPORT INFORMATION
  Report Type: Other
  Country: EG (occurrence: EG)
  Receive Date: 20211012
  Receipt Date: 20211012
  Transmission Date: 20220303
  Serious: No
  Sender: FDA-Public Use
  Company Number: EG-ROCHE-2932141

PATIENT
  Age: 27 Year
  Sex: Female
  Weight: 85 kg

DRUGS (7)
  1. OCRELIZUMAB [Suspect]
     Active Substance: OCRELIZUMAB
     Indication: Relapsing-remitting multiple sclerosis
     Route: 042
     Dates: start: 20200216
  2. INFEX (EGYPT) [Concomitant]
     Dosage: 1 U (UNIT)
     Route: 048
  3. NEUROTON [CYANOCOBALAMIN;FOLIC ACID;PYRIDOXINE HYDROCHLORIDE;RIBOFLAVI [Concomitant]
     Dosage: 1 U (UNIT)
     Route: 048
  4. ALFACALCIDOL [Concomitant]
     Active Substance: ALFACALCIDOL
     Route: 048
  5. BENFOTIAMINE\CYANOCOBALAMIN\PYRIDOXINE HYDROCHLORIDE [Concomitant]
     Active Substance: BENFOTIAMINE\CYANOCOBALAMIN\PYRIDOXINE HYDROCHLORIDE
     Route: 048
  6. PREDNISOLONE [Concomitant]
     Active Substance: PREDNISOLONE
     Route: 048
     Dates: start: 20210514, end: 20210528
  7. BETAHISTINE [Concomitant]
     Active Substance: BETAHISTINE

REACTIONS (1)
  - Influenza [Recovered/Resolved]

NARRATIVE: CASE EVENT DATE: 20210615
